FAERS Safety Report 7799814-X (Version None)
Quarter: 2011Q4

REPORT INFORMATION
  Report Type: 
  Country: None (occurrence: None)
  Receive Date: 20111006
  Receipt Date: 20111003
  Transmission Date: 20120403
  Serious: Yes (Other)
  Sender: FDA-Public Use
  Company Number: US-AMGEN-QUU403871

PATIENT
  Age: 67 Year
  Sex: Male

DRUGS (12)
  1. NPLATE [Suspect]
     Dosage: UNK
  2. NPLATE [Suspect]
  3. NPLATE [Suspect]
     Dosage: UNK
  4. NPLATE [Suspect]
     Dosage: UNK
  5. NPLATE [Suspect]
     Dosage: UNK
  6. NPLATE [Suspect]
  7. NPLATE [Suspect]
     Indication: IDIOPATHIC THROMBOCYTOPENIC PURPURA
     Dosage: 145 MUG, QWK
     Route: 058
     Dates: start: 20090821, end: 20110913
  8. NPLATE [Suspect]
     Dosage: UNK
  9. NPLATE [Suspect]
     Dosage: UNK
  10. NPLATE [Suspect]
     Dosage: UNK
  11. NPLATE [Suspect]
     Dosage: UNK
  12. NPLATE [Suspect]
     Dosage: UNK

REACTIONS (2)
  - PLATELET DISORDER [None]
  - DRUG INEFFECTIVE [None]
